FAERS Safety Report 16583028 (Version 1)
Quarter: 2019Q3

REPORT INFORMATION
  Report Type: Spontaneous
  Country: US (occurrence: US)
  Receive Date: 20190717
  Receipt Date: 20190717
  Transmission Date: 20191004
  Serious: No
  Sender: FDA-Public Use
  Company Number: US-PFIZER INC-2019297120

PATIENT
  Sex: Female

DRUGS (1)
  1. VENLAFAXINE HCL [Suspect]
     Active Substance: VENLAFAXINE HYDROCHLORIDE
     Dosage: 225 MG, DAILY (150MG AM + 75 MG PM/QTY 90 / DAY SUPPLY 30)

REACTIONS (4)
  - Depression [Unknown]
  - Crying [Unknown]
  - Irritability [Unknown]
  - Anxiety [Unknown]
